FAERS Safety Report 6279854-2 (Version None)
Quarter: 2009Q3

REPORT INFORMATION
  Report Type: 
  Country: None (occurrence: None)
  Receive Date: 20090723
  Receipt Date: 20090713
  Transmission Date: 20100115
  Serious: Yes (Hospitalization)
  Sender: FDA-Public Use
  Company Number: PHHY2008MX31490

PATIENT
  Sex: Female

DRUGS (3)
  1. DIOVAN HCT [Suspect]
     Indication: HYPERTENSION
     Dosage: 1 DF (160/25 MG) PER DAY
     Route: 048
     Dates: start: 20050501, end: 20080618
  2. DIOVAN HCT [Suspect]
     Dosage: 1 DF (160/25 MG) PER DAY
     Route: 048
  3. DOLAC [Concomitant]
     Indication: ARTHRITIS
     Dosage: 1 DF, QD

REACTIONS (3)
  - HYPOTENSION [None]
  - HYSTERECTOMY [None]
  - MULTIPLE MYELOMA [None]
